FAERS Safety Report 11096283 (Version 1)
Quarter: 2015Q2

REPORT INFORMATION
  Report Type: Report from Study
  Country: DE (occurrence: DE)
  Receive Date: 20150507
  Receipt Date: 20150507
  Transmission Date: 20150821
  Serious: Yes (Hospitalization)
  Sender: FDA-Public Use
  Company Number: DE-BIOGENIDEC-2015BI059071

PATIENT
  Age: 57 Year
  Sex: Female
  Weight: 125 kg

DRUGS (1)
  1. TECFIDERA [Suspect]
     Active Substance: DIMETHYL FUMARATE
     Indication: MULTIPLE SCLEROSIS
     Route: 048
     Dates: start: 20140523

REACTIONS (3)
  - Arthropathy [Not Recovered/Not Resolved]
  - Chondropathy [Not Recovered/Not Resolved]
  - Dizziness exertional [Recovered/Resolved]

NARRATIVE: CASE EVENT DATE: 20141224
